FAERS Safety Report 8557490-2 (Version None)
Quarter: 2012Q3

REPORT INFORMATION
  Report Type: 
  Country: None (occurrence: None)
  Receive Date: 20120801
  Receipt Date: 20120723
  Transmission Date: 20120928
  Serious: Yes (Disabling)
  Sender: FDA-Public Use
  Company Number: GB-TEVA-349674ISR

PATIENT
  Age: 59 Year
  Sex: Male

DRUGS (3)
  1. OMEPRAZOLE [Suspect]
  2. LORAZEPAM [Suspect]
     Dosage: TOOK LORAZEPINE FOR A LONG TIME, LATTERLY IN HIGH DOSES
  3. CITALOPRAM HYDROBROMIDE [Suspect]
     Dosage: TOOK CITALOPRAM FOR A LONG TIME, LATTERLY IN HIGH DOSES

REACTIONS (1)
  - HOMICIDE [None]
